FAERS Safety Report 20042125 (Version 2)
Quarter: 2021Q4

REPORT INFORMATION
  Report Type: Spontaneous
  Country: RS (occurrence: RS)
  Receive Date: 20211108
  Receipt Date: 20211121
  Transmission Date: 20220303
  Serious: Yes (Hospitalization, Other)
  Sender: FDA-Public Use
  Company Number: RS-009507513-2111SRB001086

PATIENT
  Age: 42 Year
  Sex: Female

DRUGS (3)
  1. PEMBROLIZUMAB [Suspect]
     Active Substance: PEMBROLIZUMAB
     Dosage: 200 MILLIGRAM
     Dates: start: 20180912
  2. PEMBROLIZUMAB [Suspect]
     Active Substance: PEMBROLIZUMAB
     Dosage: 200 MILLIGRAM
     Dates: start: 20181002
  3. IPILIMUMAB [Suspect]
     Active Substance: IPILIMUMAB
     Dosage: 1 MG/KG
     Dates: start: 201812

REACTIONS (25)
  - Ascites [Unknown]
  - Malignant neoplasm progression [Unknown]
  - Tumour pseudoprogression [Unknown]
  - Anaemia [Unknown]
  - Aspartate aminotransferase abnormal [Unknown]
  - Alanine aminotransferase abnormal [Unknown]
  - Blood alkaline phosphatase abnormal [Unknown]
  - Gamma-glutamyltransferase abnormal [Unknown]
  - Blood lactate dehydrogenase abnormal [Unknown]
  - Inappropriate schedule of product administration [Unknown]
  - Blood bilirubin abnormal [Unknown]
  - Bilirubin conjugated abnormal [Unknown]
  - Eastern Cooperative Oncology Group performance status worsened [Unknown]
  - Melanosis [Unknown]
  - Toxicity to various agents [Unknown]
  - Therapy partial responder [Unknown]
  - Malaise [Unknown]
  - Fatigue [Unknown]
  - General physical health deterioration [Unknown]
  - Pyrexia [Unknown]
  - Weight decreased [Unknown]
  - Swelling [Unknown]
  - White blood cell count abnormal [Unknown]
  - Neutrophil count abnormal [Unknown]
  - Platelet count abnormal [Unknown]

NARRATIVE: CASE EVENT DATE: 20180101
